FAERS Safety Report 4957609-6 (Version None)
Quarter: 2006Q1

REPORT INFORMATION
  Report Type: 
  Country: None (occurrence: None)
  Receive Date: 20060330
  Receipt Date: 20060321
  Transmission Date: 20060701
  Serious: Yes (Death)
  Sender: FDA-Public Use
  Company Number: KR-SANOFI-SYNTHELABO-A01200602196

PATIENT
  Sex: Male
  Weight: 59 kg

DRUGS (4)
  1. PLAVIX [Suspect]
     Indication: CEREBROVASCULAR ACCIDENT PROPHYLAXIS
     Route: 048
     Dates: start: 20020103, end: 20050905
  2. OXIRACETAM [Concomitant]
     Route: 048
     Dates: start: 20011214, end: 20050905
  3. CILNIDIPINE [Concomitant]
     Indication: HYPERTENSION
     Route: 048
     Dates: start: 20040319, end: 20050905
  4. IMIDAPRIL HCL [Concomitant]
     Indication: HYPERTENSION
     Route: 048
     Dates: start: 20040319, end: 20050905

REACTIONS (1)
  - RENAL FAILURE CHRONIC [None]
